FAERS Safety Report 17453923 (Version 1)
Quarter: 2020Q1

REPORT INFORMATION
  Report Type: Spontaneous
  Country: US (occurrence: US)
  Receive Date: 20200224
  Receipt Date: 20200224
  Transmission Date: 20200409
  Serious: Yes (Other)
  Sender: FDA-Public Use
  Company Number: US-BEH-2020113401

PATIENT

DRUGS (2)
  1. BERINERT [Suspect]
     Active Substance: HUMAN C1-ESTERASE INHIBITOR
     Indication: HEREDITARY ANGIOEDEMA
     Dosage: MIX 1 VIAL 10 ML AND INFUSE APPROX. 4 ML/MINUTE, PRN
     Route: 050
     Dates: start: 20191114
  2. BERINERT [Suspect]
     Active Substance: HUMAN C1-ESTERASE INHIBITOR
     Indication: HEREDITARY ANGIOEDEMA
     Dosage: MIX 1 VIAL 10 ML AND INFUSE APPROX. 4 ML/MINUTE, PRN
     Route: 050
     Dates: start: 20191114

REACTIONS (1)
  - Hereditary angioedema [Recovered/Resolved]
